FAERS Safety Report 26160525 (Version 1)
Quarter: 2025Q4

REPORT INFORMATION
  Report Type: Spontaneous
  Country: EU (occurrence: EU)
  Receive Date: 20251216
  Receipt Date: 20251216
  Transmission Date: 20260118
  Serious: Yes (Hospitalization, Other)
  Sender: AUROBINDO
  Company Number: EU-AFSSAPS-NT2025001214

PATIENT
  Age: 83 Year
  Sex: Male
  Weight: 63 kg

DRUGS (6)
  1. MEROPENEM [Suspect]
     Active Substance: MEROPENEM
     Indication: Urinary tract infection
     Dosage: 4 GRAM, ONCE A DAY (2 G, TWICE A DAY)
     Dates: start: 20251024, end: 20251103
  2. FLAGYL [Suspect]
     Active Substance: METRONIDAZOLE\METRONIDAZOLE HYDROCHLORIDE
     Indication: Cholecystitis
     Dosage: 1500 MILLIGRAM, ONCE A DAY (500 MG, 3 TIMES A DAY)
     Route: 061
     Dates: start: 20251015
  3. CEFTRIAXONE SODIUM [Suspect]
     Active Substance: CEFTRIAXONE SODIUM
     Indication: Urinary tract infection
     Dosage: 1 GRAM, ONCE A DAY
     Dates: start: 20251011, end: 20251013
  4. CEFTRIAXONE SODIUM [Suspect]
     Active Substance: CEFTRIAXONE SODIUM
     Dosage: 2 GRAM, ONCE A DAY
     Dates: start: 20251013, end: 20251016
  5. PIPERACILLIN SODIUM\TAZOBACTAM SODIUM [Suspect]
     Active Substance: PIPERACILLIN SODIUM\TAZOBACTAM SODIUM
     Indication: Urinary tract infection
     Dosage: 4 GRAM, ONCE A DAY
     Dates: start: 20251017, end: 20251024
  6. BACTRIM [Suspect]
     Active Substance: SULFAMETHOXAZOLE\TRIMETHOPRIM
     Indication: Infection prophylaxis
     Dosage: 1 CP ON MONDAYS, WEDNESDAYS AND FRIDAYS
     Route: 061

REACTIONS (1)
  - Toxic encephalopathy [Recovering/Resolving]

NARRATIVE: CASE EVENT DATE: 20251024
